FAERS Safety Report 8804522 (Version 2)
Quarter: 2015Q1

REPORT INFORMATION
  Report Type: Report from Study
  Country: US (occurrence: US)
  Receive Date: 20120924
  Receipt Date: 20150303
  Transmission Date: 20150721
  Serious: Yes (Death, Hospitalization)
  Sender: FDA-Public Use
  Company Number: US-ROCHE-1103588

PATIENT
  Age: 64 Year
  Sex: Male

DRUGS (15)
  1. AVAPRO [Concomitant]
     Active Substance: IRBESARTAN
  2. BENADRYL [Concomitant]
     Active Substance: DIPHENHYDRAMINE HYDROCHLORIDE
     Route: 065
  3. OXYCONTIN [Concomitant]
     Active Substance: OXYCODONE HYDROCHLORIDE
  4. DECADRON [Concomitant]
     Active Substance: DEXAMETHASONE
     Route: 065
  5. AVASTIN [Suspect]
     Active Substance: BEVACIZUMAB
     Indication: RENAL CANCER
     Route: 042
     Dates: start: 20070216
  6. ATIVAN [Concomitant]
     Active Substance: LORAZEPAM
     Route: 048
  7. AVASTIN [Suspect]
     Active Substance: BEVACIZUMAB
     Indication: MALIGNANT URINARY TRACT NEOPLASM
     Route: 042
  8. ANZEMET [Concomitant]
     Active Substance: DOLASETRON MESYLATE
     Route: 065
  9. GRANISETRON [Concomitant]
     Active Substance: GRANISETRON
     Route: 065
  10. HYCODAN (UNITED STATES) [Concomitant]
  11. LASIX [Concomitant]
     Active Substance: FUROSEMIDE
     Route: 065
  12. COREG [Concomitant]
     Active Substance: CARVEDILOL
  13. VICODIN [Concomitant]
     Active Substance: ACETAMINOPHEN\HYDROCODONE BITARTRATE
  14. CIMETIDINE [Concomitant]
     Active Substance: CIMETIDINE
     Route: 065
  15. VICODIN [Concomitant]
     Active Substance: ACETAMINOPHEN\HYDROCODONE BITARTRATE

REACTIONS (4)
  - Death [Fatal]
  - Abdominal pain upper [Unknown]
  - Chest pain [Recovered/Resolved]
  - Off label use [Unknown]

NARRATIVE: CASE EVENT DATE: 20070626
